FAERS Safety Report 7884648-8 (Version None)
Quarter: 2011Q4

REPORT INFORMATION
  Report Type: 
  Country: None (occurrence: None)
  Receive Date: 20111102
  Receipt Date: 20111027
  Transmission Date: 20120403
  Serious: Yes (Hospitalization, Disabling)
  Sender: FDA-Public Use
  Company Number: US-MERCK-1105USA03429

PATIENT
  Age: 56 Year
  Sex: Female
  Weight: 70 kg

DRUGS (8)
  1. FOSAMAX [Suspect]
     Indication: OSTEOPOROSIS
     Route: 048
     Dates: start: 20050901, end: 20100803
  2. KLOR-CON [Concomitant]
     Indication: BLOOD POTASSIUM
     Route: 065
  3. ALENDRONATE SODIUM [Suspect]
     Indication: OSTEOPOROSIS
     Route: 048
     Dates: start: 20080523, end: 20100716
  4. TRIAMTERENE [Concomitant]
     Route: 065
  5. FLEXERIL [Concomitant]
     Indication: FIBROMYALGIA
     Route: 048
  6. VITAMIN E [Concomitant]
     Route: 065
     Dates: start: 19700101
  7. VITA C [Concomitant]
     Route: 065
     Dates: start: 19750101
  8. MELOXICAM [Concomitant]
     Indication: ARTHRITIS
     Route: 065

REACTIONS (39)
  - HAEMORRHAGIC ANAEMIA [None]
  - PNEUMOTHORAX [None]
  - MYOSITIS [None]
  - SCIATICA [None]
  - SPINAL OSTEOARTHRITIS [None]
  - BENIGN NEOPLASM OF SKIN [None]
  - PATELLA FRACTURE [None]
  - LUMBAR SPINAL STENOSIS [None]
  - HYPERTENSION [None]
  - HIATUS HERNIA [None]
  - RENAL CYST [None]
  - ASTHMA [None]
  - INTERVERTEBRAL DISC PROTRUSION [None]
  - TENDONITIS [None]
  - ACUTE CORONARY SYNDROME [None]
  - INTERVERTEBRAL DISC DEGENERATION [None]
  - UPPER RESPIRATORY TRACT INFECTION [None]
  - BURSITIS [None]
  - PAIN IN EXTREMITY [None]
  - ATELECTASIS [None]
  - FALL [None]
  - DEVICE FAILURE [None]
  - DYSPHAGIA [None]
  - EYE INJURY [None]
  - FEMUR FRACTURE [None]
  - LOW TURNOVER OSTEOPATHY [None]
  - INCISION SITE HAEMATOMA [None]
  - GASTROOESOPHAGEAL REFLUX DISEASE [None]
  - FOOT FRACTURE [None]
  - REFLUX GASTRITIS [None]
  - MUSCLE STRAIN [None]
  - DRY MOUTH [None]
  - CHEST PAIN [None]
  - HYPOKALAEMIA [None]
  - FUNCTIONAL GASTROINTESTINAL DISORDER [None]
  - OCCULT BLOOD POSITIVE [None]
  - ARTERIOSCLEROSIS [None]
  - MYALGIA [None]
  - ANKLE FRACTURE [None]
